FAERS Safety Report 19962961 (Version 2)
Quarter: 2021Q4

REPORT INFORMATION
  Report Type: Report from Study
  Country: US (occurrence: None)
  Receive Date: 20211018
  Receipt Date: 20211105
  Transmission Date: 20220303
  Serious: Yes (Life-Threatening, Hospitalization)
  Sender: FDA-Public Use
  Company Number: US-ROCHE-2933993

PATIENT
  Age: 53 Year
  Sex: Female
  Weight: 70.3 kg

DRUGS (6)
  1. ATEZOLIZUMAB [Suspect]
     Active Substance: ATEZOLIZUMAB
     Indication: Breast cancer metastatic
     Dosage: ON 26/MAY/2020, SHE RECEIVED MOST RECENT DOSE OF ATEZOLIZUMAB PRIOR TO THE EVENT.
     Route: 041
     Dates: start: 20200415
  2. PACLITAXEL [Suspect]
     Active Substance: PACLITAXEL
     Indication: Breast cancer metastatic
     Dosage: ON 16/NOV/2020, HE RECEIVED MOST RECENT DOSE OF PACLITAXEL PRIOR TO THE EVENT. ?TOTAL DOSE: 0 MG
     Route: 042
     Dates: start: 20200415
  3. PERTUZUMAB [Suspect]
     Active Substance: PERTUZUMAB
     Indication: Breast cancer metastatic
     Dosage: ON 05/JAN/2021,RECEIVED MOST RECENT DOSE OF PERTUZUMAB PRIOR TO THE EVENT.
     Route: 042
     Dates: start: 20200415
  4. TRASTUZUMAB [Suspect]
     Active Substance: TRASTUZUMAB
     Indication: Breast cancer metastatic
     Dosage: D22 DOSE RECALCULATED DUE TO WEIGHT LOSS.?ON 05/JAN/2021,RECEIVED MOST RECENT DOSE OF TRASTUZUMAB PR
     Route: 041
     Dates: start: 20200415
  5. KEFLEX [Concomitant]
     Active Substance: CEPHALEXIN
  6. ZOFRAN [Concomitant]
     Active Substance: ONDANSETRON HYDROCHLORIDE

REACTIONS (1)
  - Sepsis [Recovered/Resolved with Sequelae]

NARRATIVE: CASE EVENT DATE: 20210113
